FAERS Safety Report 11249871 (Version 1)
Quarter: 2015Q3

REPORT INFORMATION
  Report Type: Spontaneous
  Country: US (occurrence: US)
  Receive Date: 20150708
  Receipt Date: 20150708
  Transmission Date: 20151125
  Serious: Yes (Other)
  Sender: FDA-Public Use
  Company Number: US-ELI_LILLY_AND_COMPANY-US200905002286

PATIENT
  Age: 45 Year
  Sex: Female
  Weight: 59.91 kg

DRUGS (7)
  1. FULVESTRANT [Concomitant]
     Active Substance: FULVESTRANT
  2. FLUOXETINE [Concomitant]
     Active Substance: FLUOXETINE\FLUOXETINE HYDROCHLORIDE
  3. ALPRAZOLAM. [Concomitant]
     Active Substance: ALPRAZOLAM
  4. GEMZAR [Suspect]
     Active Substance: GEMCITABINE HYDROCHLORIDE
     Indication: TUMOUR MARKER INCREASED
     Dosage: UNK, UNKNOWN
  5. PAMIDRONIC ACID [Concomitant]
     Active Substance: PAMIDRONIC ACID
  6. EXEMESTANE. [Concomitant]
     Active Substance: EXEMESTANE
  7. CAPECITABINE. [Concomitant]
     Active Substance: CAPECITABINE
     Indication: BREAST CANCER METASTATIC
     Dosage: 1150 MG, 2/D
     Route: 048
     Dates: start: 200704

REACTIONS (5)
  - Erythema [Not Recovered/Not Resolved]
  - Gait disturbance [Not Recovered/Not Resolved]
  - Oedema peripheral [Not Recovered/Not Resolved]
  - Pain [Not Recovered/Not Resolved]
  - Muscular weakness [Not Recovered/Not Resolved]

NARRATIVE: CASE EVENT DATE: 200904
